FAERS Safety Report 7740400-5 (Version None)
Quarter: 2011Q3

REPORT INFORMATION
  Report Type: 
  Country: None (occurrence: None)
  Receive Date: 20110909
  Receipt Date: 20110811
  Transmission Date: 20111222
  Serious: No
  Sender: FDA-Public Use
  Company Number: US-BAYER-2011-073594

PATIENT
  Sex: Female

DRUGS (4)
  1. ACETAMINOPHEN [Suspect]
     Indication: PAIN IN JAW
  2. ALEVE (CAPLET) [Suspect]
     Indication: PAIN IN JAW
     Dosage: BOTTLE COUNT WAS NOT REPORTED.
     Route: 048
  3. ACETAMINOPHEN [Suspect]
     Indication: TOOTHACHE
  4. ALEVE (CAPLET) [Suspect]
     Indication: TOOTHACHE

REACTIONS (4)
  - HYPERSENSITIVITY [None]
  - TOOTHACHE [None]
  - PRURITUS [None]
  - PAIN IN JAW [None]
